FAERS Safety Report 12015998 (Version 1)
Quarter: 2016Q1

REPORT INFORMATION
  Report Type: Spontaneous
  Country: US (occurrence: US)
  Receive Date: 20160205
  Receipt Date: 20160205
  Transmission Date: 20160526
  Serious: No
  Sender: FDA-Public Use
  Company Number: US-AMGEN-USASP2015094024

PATIENT
  Age: 59 Year
  Sex: Female
  Weight: 71 kg

DRUGS (2)
  1. CYCLOPHOSPHAMIDE. [Concomitant]
     Active Substance: CYCLOPHOSPHAMIDE
     Indication: TRIPLE NEGATIVE BREAST CANCER
     Dosage: UNK
  2. NEULASTA [Suspect]
     Active Substance: PEGFILGRASTIM
     Indication: PRODUCT USED FOR UNKNOWN INDICATION
     Dosage: UNK, Q3WK
     Route: 058
     Dates: start: 20150701

REACTIONS (7)
  - Adverse reaction [Not Recovered/Not Resolved]
  - Eructation [Not Recovered/Not Resolved]
  - Bone pain [Recovered/Resolved]
  - Gastrooesophageal reflux disease [Not Recovered/Not Resolved]
  - Muscular weakness [Not Recovered/Not Resolved]
  - Cough [Not Recovered/Not Resolved]
  - Feeling hot [Not Recovered/Not Resolved]

NARRATIVE: CASE EVENT DATE: 20150705
